FAERS Safety Report 16715365 (Version 1)
Quarter: 2019Q4

REPORT INFORMATION
  Report Type: Spontaneous
  Country: US (occurrence: US)
  Receive Date: 20190816
  Receipt Date: 20190816
  Transmission Date: 20200122
  Serious: Yes (Hospitalization)
  Sender: FDA-Public Use
  Company Number: None

PATIENT
  Age: 70 Year
  Sex: Male

DRUGS (9)
  1. SILDENAFIL. [Suspect]
     Active Substance: SILDENAFIL
     Indication: PULMONARY ARTERIAL HYPERTENSION
     Route: 048
     Dates: start: 20180221
  2. TORSEMIDE TAB 20 MG [Concomitant]
  3. METOPROLOL SUC TAB 25 MG ER [Concomitant]
  4. PREDNISONE TAB 20 MG [Concomitant]
  5. RETACRIT 40,000 [Concomitant]
  6. FOLIC ACID TAB 1000 MCG [Concomitant]
  7. FUROSEMIDE TAB 40 MG [Concomitant]
  8. ATORVASTATIN TAB 20 MG [Concomitant]
  9. DILTIAZEM CAP 180 MG ER [Concomitant]

REACTIONS (2)
  - Atrial fibrillation [None]
  - Blood glucose increased [None]
